FAERS Safety Report 15683069 (Version 2)
Quarter: 2019Q1

REPORT INFORMATION
  Report Type: Spontaneous
  Country: GB (occurrence: GB)
  Receive Date: 20181204
  Receipt Date: 20190226
  Transmission Date: 20190417
  Serious: Yes (Life-Threatening, Hospitalization)
  Sender: FDA-Public Use
  Company Number: GB-ACCORD-094558

PATIENT
  Age: 80 Year
  Sex: Male
  Weight: 64.63 kg

DRUGS (3)
  1. EZETIMIBE. [Concomitant]
     Active Substance: EZETIMIBE
     Dates: start: 20170930, end: 20171224
  2. CLOPIDOGREL [Suspect]
     Active Substance: CLOPIDOGREL BISULFATE
     Indication: PARTIAL SEIZURES
     Route: 048
     Dates: start: 20170930, end: 20171225
  3. ACETYLSALICYLIC ACID [Concomitant]
     Active Substance: ASPIRIN
     Dates: end: 20170929

REACTIONS (4)
  - Off label use [Unknown]
  - Epistaxis [Recovered/Resolved]
  - Urethral haemorrhage [Recovered/Resolved]
  - Nail bed bleeding [Recovered/Resolved]

NARRATIVE: CASE EVENT DATE: 20171207
